FAERS Safety Report 7449167-1 (Version None)
Quarter: 2011Q2

REPORT INFORMATION
  Report Type: 
  Country: None (occurrence: None)
  Receive Date: 20110502
  Receipt Date: 20110422
  Transmission Date: 20111010
  Serious: Yes (Hospitalization)
  Sender: FDA-Public Use
  Company Number: US-BIOGENIDEC-2011BI014073

PATIENT
  Age: 51 Year
  Sex: Male
  Weight: 90 kg

DRUGS (4)
  1. TYSABRI [Suspect]
     Indication: MULTIPLE SCLEROSIS
     Route: 042
     Dates: start: 20090126
  2. TYSABRI [Suspect]
     Route: 042
     Dates: start: 20070601, end: 20080702
  3. TYSABRI [Suspect]
     Route: 042
     Dates: start: 20081126, end: 20081229
  4. BACLOFEN [Concomitant]
     Indication: MUSCLE SPASTICITY
     Dates: start: 20040401

REACTIONS (1)
  - URINARY RETENTION [None]
